FAERS Safety Report 7297326-3 (Version None)
Quarter: 2011Q1

REPORT INFORMATION
  Report Type: 
  Country: None (occurrence: None)
  Receive Date: 20110204
  Receipt Date: 20110119
  Transmission Date: 20110831
  Serious: Yes (Other)
  Sender: FDA-Public Use
  Company Number: 1000018560

PATIENT
  Age: 44 Year
  Sex: Female

DRUGS (3)
  1. ESCITALOPRAM OXALATE [Suspect]
     Indication: MAJOR DEPRESSION
     Dosage: 10 MG (10 MG, 1 IN 1 D)
  2. SURMONTIL [Concomitant]
  3. LITHIUM CARBONATE [Concomitant]

REACTIONS (2)
  - HYPOMANIA [None]
  - DISTURBANCE IN SEXUAL AROUSAL [None]
